FAERS Safety Report 10761940 (Version 1)
Quarter: 2015Q1

REPORT INFORMATION
  Report Type: Spontaneous
  Country: US (occurrence: None)
  Receive Date: 20150128
  Receipt Date: 20150128
  Transmission Date: 20150721
  Serious: Yes (Other)
  Sender: FDA-Public Use
  Company Number: 1450161

PATIENT
  Age: 69 Year
  Sex: Female

DRUGS (1)
  1. RITUXAN [Suspect]
     Active Substance: RITUXIMAB
     Indication: PRODUCT USED FOR UNKNOWN INDICATION
     Dosage: EVERY 6 MONTHS (1000 MG, 1 IN 6 M)
     Dates: start: 2009

REACTIONS (2)
  - Cryptococcosis [None]
  - Oxygen saturation decreased [None]

NARRATIVE: CASE EVENT DATE: 201407
